FAERS Safety Report 11428004 (Version 1)
Quarter: 2015Q3

REPORT INFORMATION
  Report Type: Spontaneous
  Country: NO (occurrence: NO)
  Receive Date: 20150828
  Receipt Date: 20150828
  Transmission Date: 20151125
  Serious: Yes (Other)
  Sender: FDA-Public Use
  Company Number: NO-ASTRAZENECA-2015SE82136

PATIENT
  Age: 43 Year
  Sex: Male

DRUGS (6)
  1. QUETIAPINE [Suspect]
     Active Substance: QUETIAPINE
     Route: 048
  2. WELLBUTRIN [Suspect]
     Active Substance: BUPROPION HYDROCHLORIDE
     Route: 065
  3. RIVOTRIL [Suspect]
     Active Substance: CLONAZEPAM
     Route: 065
  4. NEURONTIN [Suspect]
     Active Substance: GABAPENTIN
     Route: 065
  5. LAMICTAL [Suspect]
     Active Substance: LAMOTRIGINE
     Route: 065
  6. LORATADINE. [Suspect]
     Active Substance: LORATADINE
     Route: 065

REACTIONS (6)
  - Wrong drug administered [Recovered/Resolved]
  - Intercepted medication error [Recovered/Resolved]
  - Dizziness [Unknown]
  - Walking disability [Unknown]
  - Dysarthria [Unknown]
  - Fatigue [Unknown]
